FAERS Safety Report 13006976 (Version 1)
Quarter: 2016Q4

REPORT INFORMATION
  Report Type: Report from Study
  Country: IT (occurrence: IT)
  Receive Date: 20161207
  Receipt Date: 20161207
  Transmission Date: 20170207
  Serious: Yes (Hospitalization)
  Sender: FDA-Public Use
  Company Number: IT-TEVA-716964ACC

PATIENT
  Age: 20 Year
  Sex: Female
  Weight: 55 kg

DRUGS (4)
  1. PARACETAMOL [Suspect]
     Active Substance: ACETAMINOPHEN
     Indication: DRUG ABUSE
     Route: 048
     Dates: start: 20150608, end: 20150608
  2. FLUNOX - 30 MG CAPSULE RIGIDE - TEOFARMA S.R.L. [Suspect]
     Active Substance: FLURAZEPAM HYDROCHLORIDE
     Indication: DRUG ABUSE
     Route: 048
     Dates: start: 20150608, end: 20150608
  3. FLUOXETINE [Suspect]
     Active Substance: FLUOXETINE HYDROCHLORIDE
     Indication: DRUG ABUSE
     Route: 048
     Dates: start: 20150608, end: 20150608
  4. VALIUM [Suspect]
     Active Substance: DIAZEPAM
     Indication: DRUG ABUSE
     Route: 048
     Dates: start: 20150608, end: 20150608

REACTIONS (3)
  - Somnolence [Recovering/Resolving]
  - Drug abuse [Recovering/Resolving]
  - Poverty of speech [Recovering/Resolving]

NARRATIVE: CASE EVENT DATE: 20150608
